FAERS Safety Report 4929559-2 (Version None)
Quarter: 2006Q1

REPORT INFORMATION
  Report Type: 
  Country: None (occurrence: None)
  Receive Date: 20060223
  Receipt Date: 20060210
  Transmission Date: 20060701
  Serious: Yes (Hospitalization, Other)
  Sender: FDA-Public Use
  Company Number: 2005085279

PATIENT
  Age: 79 Year
  Sex: Male
  Weight: 81.6475 kg

DRUGS (14)
  1. LIPITOR [Suspect]
     Indication: BLOOD CHOLESTEROL INCREASED
     Dosage: 10 MG (10 MG, 1 IN 1 D), ORAL
     Route: 048
     Dates: start: 20040909, end: 20050501
  2. BAYCOL [Suspect]
     Indication: ILL-DEFINED DISORDER
  3. ZOCOR [Suspect]
     Indication: ILL-DEFINED DISORDER
     Dosage: 20 MG (20 MG, 1 IN 1 D)
  4. TENEX [Suspect]
     Indication: ILL-DEFINED DISORDER
  5. VASOTEC [Suspect]
     Indication: ILL-DEFINED DISORDER
  6. TENORMIN [Suspect]
     Indication: ILL-DEFINED DISORDER
  7. PLENDIL [Concomitant]
  8. HYDROCHLOROTHIAZIDE [Concomitant]
  9. POTASSIUM (POTASSIUM) [Concomitant]
  10. ASPIRIN [Concomitant]
  11. DIGOXIN [Concomitant]
  12. CARDIZEM [Concomitant]
  13. BUFFERIN [Concomitant]
  14. WARFARIN SODIUM [Concomitant]

REACTIONS (21)
  - ANGINA PECTORIS [None]
  - AORTIC ANEURYSM [None]
  - AORTIC CALCIFICATION [None]
  - AORTIC DISORDER [None]
  - ARRHYTHMIA [None]
  - ARTERIOSCLEROSIS CORONARY ARTERY [None]
  - ATRIAL FIBRILLATION [None]
  - CHEST DISCOMFORT [None]
  - CONTUSION [None]
  - DYSPNOEA [None]
  - HYPERTENSION [None]
  - HYPERTENSIVE HEART DISEASE [None]
  - HYPOACUSIS [None]
  - LABORATORY TEST ABNORMAL [None]
  - MUSCLE SPASMS [None]
  - MUSCLE TIGHTNESS [None]
  - MYALGIA [None]
  - RASH [None]
  - SICK SINUS SYNDROME [None]
  - VENTRICULAR EXTRASYSTOLES [None]
  - VENTRICULAR HYPERTROPHY [None]
